FAERS Safety Report 24588679 (Version 1)
Quarter: 2024Q4

REPORT INFORMATION
  Report Type: Spontaneous
  Country: US (occurrence: None)
  Receive Date: 20241107
  Receipt Date: 20241107
  Transmission Date: 20250115
  Serious: Yes (Hospitalization)
  Sender: Public
  Company Number: None

PATIENT
  Sex: Female

DRUGS (2)
  1. OPSUMIT [Suspect]
     Active Substance: MACITENTAN
     Indication: Pulmonary arterial hypertension
     Dosage: FREQUENCY : DAILY;?
     Route: 048
     Dates: start: 202409
  2. ADEMPAS [Suspect]
     Active Substance: RIOCIGUAT

REACTIONS (8)
  - Pneumonia [None]
  - Influenza [None]
  - Pleural effusion [None]
  - Oedema [None]
  - Dyspnoea exertional [None]
  - Anxiety [None]
  - Depression [None]
  - Pain [None]
